FAERS Safety Report 11508988 (Version 3)
Quarter: 2015Q4

REPORT INFORMATION
  Report Type: Spontaneous
  Country: JP (occurrence: JP)
  Receive Date: 20150915
  Receipt Date: 20151021
  Transmission Date: 20160304
  Serious: Yes (Hospitalization)
  Sender: FDA-Public Use
  Company Number: JP-009507513-1509JPN007490

PATIENT

DRUGS (2)
  1. SINGULAIR [Concomitant]
     Active Substance: MONTELUKAST SODIUM
     Indication: ASTHMA
     Dosage: DAILY DOSAGE UNKNOWN
     Route: 048
  2. SINGULAIR [Suspect]
     Active Substance: MONTELUKAST SODIUM
     Indication: ASTHMA
     Dosage: 5 MG, QD
     Route: 048
     Dates: start: 201508, end: 201508

REACTIONS (3)
  - Tonsillar disorder [Unknown]
  - Drug eruption [Recovered/Resolved]
  - Adenoidal disorder [Unknown]

NARRATIVE: CASE EVENT DATE: 201508
